FAERS Safety Report 7229278-6 (Version None)
Quarter: 2011Q1

REPORT INFORMATION
  Report Type: 
  Country: None (occurrence: None)
  Receive Date: 20110117
  Receipt Date: 20110112
  Transmission Date: 20110831
  Serious: Yes (Death, Hospitalization)
  Sender: FDA-Public Use
  Company Number: US-AMGEN-USASP2010010471

PATIENT

DRUGS (9)
  1. ENBREL [Suspect]
     Indication: RHEUMATOID ARTHRITIS
     Dosage: 50 MG, QWK
     Route: 058
     Dates: start: 20030301, end: 20101101
  2. VITAMIN A [Concomitant]
  3. FOSAMAX [Concomitant]
  4. PREDNISONE [Concomitant]
  5. CALCIUM [Concomitant]
  6. CELEBREX [Concomitant]
  7. SKELAXIN [Concomitant]
  8. PLAQUENIL [Concomitant]
  9. DARVOCET [Concomitant]

REACTIONS (9)
  - NON-CARDIAC CHEST PAIN [None]
  - UPPER RESPIRATORY TRACT INFECTION [None]
  - WHITE BLOOD CELL COUNT INCREASED [None]
  - LUNG CANCER METASTATIC [None]
  - ABDOMINAL PAIN UPPER [None]
  - METASTASES TO LIVER [None]
  - LIVER FUNCTION TEST ABNORMAL [None]
  - CHEST INJURY [None]
  - NAUSEA [None]
